FAERS Safety Report 8185111-X (Version None)
Quarter: 2012Q1

REPORT INFORMATION
  Report Type: 
  Country: None (occurrence: None)
  Receive Date: 20120305
  Receipt Date: 20120227
  Transmission Date: 20120608
  Serious: No
  Sender: FDA-Public Use
  Company Number: US-PFIZER INC-2012052391

PATIENT
  Sex: Female
  Weight: 97.506 kg

DRUGS (3)
  1. CHANTIX [Suspect]
     Indication: SMOKING CESSATION THERAPY
     Dosage: 0.5 MG, 1X/DAY
     Route: 048
     Dates: start: 20120207, end: 20120201
  2. CHANTIX [Suspect]
     Dosage: 0.5 MG, 2X/DAY
     Dates: start: 20120201
  3. METOPROLOL [Concomitant]
     Indication: HYPERTENSION
     Dosage: 25 MG, 1X/DAY

REACTIONS (8)
  - CRYING [None]
  - EMOTIONAL DISORDER [None]
  - FEELING ABNORMAL [None]
  - NIGHTMARE [None]
  - INSOMNIA [None]
  - ANGER [None]
  - ULCER [None]
  - ABDOMINAL DISCOMFORT [None]
